FAERS Safety Report 11212767 (Version 1)
Quarter: 2015Q2

REPORT INFORMATION
  Report Type: Spontaneous
  Country: US (occurrence: None)
  Receive Date: 20150622
  Receipt Date: 20150622
  Transmission Date: 20150821
  Serious: No
  Sender: FDA-Public Use
  Company Number: None

PATIENT
  Age: 86 Year
  Sex: Female
  Weight: 52.62 kg

DRUGS (3)
  1. NITROFURANTOIN 100MG ALVOGEN [Suspect]
     Active Substance: NITROFURANTOIN
     Indication: CYSTITIS
     Route: 048
     Dates: start: 20150617, end: 20150618
  2. GENERAL HEALTH DAILY FUNDAMENTALS (VITAMIN AND MINERAL SUPPLEMENT) [Concomitant]
  3. OSTEOMEDICA MCHC BONE SUPPLEMENT [Concomitant]

REACTIONS (3)
  - Pain [None]
  - Chills [None]
  - Pyrexia [None]

NARRATIVE: CASE EVENT DATE: 20150617
